FAERS Safety Report 4966603-0 (Version None)
Quarter: 2006Q2

REPORT INFORMATION
  Report Type: 
  Country: None (occurrence: None)
  Receive Date: 20060407
  Receipt Date: 20060405
  Transmission Date: 20061013
  Serious: Yes (Other)
  Sender: FDA-Public Use
  Company Number: DE-AVENTIS-200610951DE

PATIENT
  Sex: Female

DRUGS (1)
  1. LASIX [Suspect]
     Route: 042
     Dates: start: 20060101

REACTIONS (1)
  - ANURIA [None]
